FAERS Safety Report 7920978-9 (Version None)
Quarter: 2011Q4

REPORT INFORMATION
  Report Type: 
  Country: None (occurrence: None)
  Receive Date: 20111117
  Receipt Date: 20111114
  Transmission Date: 20120403
  Serious: Yes (Hospitalization)
  Sender: FDA-Public Use
  Company Number: US-TEVA-307323USA

PATIENT
  Sex: Male
  Weight: 77.18 kg

DRUGS (4)
  1. ACETYLSALICYLIC ACID SRT [Concomitant]
  2. CITALOPRAM HYDROBROMIDE [Concomitant]
  3. BLOOD PRESSURE MEDS (NOS) [Concomitant]
  4. PROAIR HFA [Suspect]
     Indication: CHRONIC OBSTRUCTIVE PULMONARY DISEASE
     Route: 055

REACTIONS (2)
  - UPPER RESPIRATORY TRACT INFECTION [None]
  - TREMOR [None]
